FAERS Safety Report 12644465 (Version 1)
Quarter: 2016Q3

REPORT INFORMATION
  Report Type: Spontaneous
  Country: US (occurrence: US)
  Receive Date: 20160811
  Receipt Date: 20160811
  Transmission Date: 20161109
  Serious: No
  Sender: FDA-Public Use
  Company Number: PHEH2016US020147

PATIENT
  Sex: Female

DRUGS (1)
  1. TASIGNA [Suspect]
     Active Substance: NILOTINIB
     Indication: PRODUCT USED FOR UNKNOWN INDICATION
     Route: 065

REACTIONS (8)
  - Limb injury [Unknown]
  - Palpitations [Unknown]
  - Heart rate increased [Unknown]
  - Insomnia [Unknown]
  - Headache [Unknown]
  - Heart rate irregular [Unknown]
  - Syncope [Unknown]
  - Fatigue [Unknown]
